FAERS Safety Report 15153962 (Version 1)
Quarter: 2018Q3

REPORT INFORMATION
  Report Type: Spontaneous
  Country: US (occurrence: US)
  Receive Date: 20180717
  Receipt Date: 20180717
  Transmission Date: 20181010
  Serious: Yes (Life-Threatening, Hospitalization, Other)
  Sender: FDA-Public Use
  Company Number: US-ASTRAZENECA-2018SE88908

PATIENT
  Sex: Male
  Weight: 95.3 kg

DRUGS (4)
  1. INSULIN [Concomitant]
     Active Substance: INSULIN NOS
     Dosage: 3 DIFFERENT TYPES OF INSULIN
  2. FARXIGA [Suspect]
     Active Substance: DAPAGLIFLOZIN PROPANEDIOL
     Indication: BLOOD GLUCOSE DECREASED
     Route: 048
     Dates: start: 201610
  3. FARXIGA [Suspect]
     Active Substance: DAPAGLIFLOZIN PROPANEDIOL
     Indication: GLYCOSYLATED HAEMOGLOBIN DECREASED
     Route: 048
     Dates: start: 201610
  4. INSULIN [Concomitant]
     Active Substance: INSULIN NOS

REACTIONS (5)
  - Sepsis [Recovered/Resolved]
  - Urinary tract infection [Recovered/Resolved]
  - Fungal infection [Recovered/Resolved]
  - Infection [Recovered/Resolved]
  - Blood ketone body increased [Recovered/Resolved]
